FAERS Safety Report 19099412 (Version 1)
Quarter: 2021Q2

REPORT INFORMATION
  Report Type: Spontaneous
  Country: ES (occurrence: ES)
  Receive Date: 20210406
  Receipt Date: 20210406
  Transmission Date: 20210717
  Serious: Yes (Other)
  Sender: FDA-Public Use
  Company Number: ES-ASTRAZENECA-2021A258316

PATIENT
  Age: 40 Year
  Sex: Male

DRUGS (5)
  1. BRILIQUE [Suspect]
     Active Substance: TICAGRELOR
     Indication: ACUTE CORONARY SYNDROME
     Route: 048
     Dates: start: 20201207
  2. A.A.S. [Concomitant]
     Active Substance: ASPIRIN
     Route: 065
  3. CARDYL [Concomitant]
     Active Substance: ATORVASTATIN CALCIUM
     Dosage: 80 MG COATED TABLET WITH FILM
     Route: 065
  4. RAMIPRIL (2497A) [Concomitant]
     Active Substance: RAMIPRIL
     Route: 065
  5. SYNJARDY [Concomitant]
     Active Substance: EMPAGLIFLOZIN\METFORMIN HYDROCHLORIDE
     Route: 065

REACTIONS (2)
  - Rectal haemorrhage [Recovered/Resolved]
  - Anaemia [Recovered/Resolved]

NARRATIVE: CASE EVENT DATE: 20210122
